FAERS Safety Report 25727561 (Version 1)
Quarter: 2025Q3

REPORT INFORMATION
  Report Type: Spontaneous
  Country: US (occurrence: None)
  Receive Date: 20250826
  Receipt Date: 20250826
  Transmission Date: 20251021
  Serious: Yes (Hospitalization, Disabling)
  Sender: FDA-CTU
  Company Number: None

PATIENT
  Age: 54 Year
  Sex: Female
  Weight: 65.25 kg

DRUGS (1)
  1. BOTOX [Suspect]
     Active Substance: ONABOTULINUMTOXINA
     Indication: Migraine
     Route: 058
     Dates: start: 20250703

REACTIONS (7)
  - Influenza like illness [None]
  - Asthenia [None]
  - Spinal instability [None]
  - Heart rate abnormal [None]
  - Chills [None]
  - Hot flush [None]
  - Balance disorder [None]

NARRATIVE: CASE EVENT DATE: 20250703
